FAERS Safety Report 14435135 (Version 1)
Quarter: 2018Q1

REPORT INFORMATION
  Report Type: Spontaneous
  Country: US (occurrence: US)
  Receive Date: 20180125
  Receipt Date: 20180125
  Transmission Date: 20180509
  Serious: No
  Sender: FDA-Public Use
  Company Number: US-ASTRAZENECA-2010BM11681

PATIENT
  Age: 60 Year
  Sex: Female

DRUGS (8)
  1. VICTOZA [Concomitant]
     Active Substance: LIRAGLUTIDE
  2. BYETTA [Suspect]
     Active Substance: EXENATIDE
     Indication: TYPE 2 DIABETES MELLITUS
     Route: 058
     Dates: start: 201009
  3. EXENATIDE. [Suspect]
     Active Substance: EXENATIDE
     Route: 065
  4. METFORMIN [Concomitant]
     Active Substance: METFORMIN HYDROCHLORIDE
  5. FARXIGA [Suspect]
     Active Substance: DAPAGLIFLOZIN PROPANEDIOL
     Route: 048
     Dates: start: 2017
  6. EXENATIDE. [Suspect]
     Active Substance: EXENATIDE
     Route: 065
  7. BYETTA [Suspect]
     Active Substance: EXENATIDE
     Indication: TYPE 2 DIABETES MELLITUS
     Route: 058
  8. EXENATIDE. [Suspect]
     Active Substance: EXENATIDE
     Route: 065

REACTIONS (3)
  - Nausea [Recovered/Resolved]
  - Weight decreased [Unknown]
  - Blood glucose increased [Not Recovered/Not Resolved]
